FAERS Safety Report 21568217 (Version 1)
Quarter: 2022Q4

REPORT INFORMATION
  Report Type: Report from Study
  Country: ZA (occurrence: ZA)
  Receive Date: 20221108
  Receipt Date: 20221108
  Transmission Date: 20230112
  Serious: Yes (Death)
  Sender: FDA-Public Use
  Company Number: ZA-PFIZER INC-PV202200097396

PATIENT

DRUGS (1)
  1. ENCORAFENIB [Suspect]
     Active Substance: ENCORAFENIB

REACTIONS (1)
  - Death [Fatal]
